FAERS Safety Report 21507355 (Version 1)
Quarter: 2022Q4

REPORT INFORMATION
  Report Type: Spontaneous
  Country: GB (occurrence: GB)
  Receive Date: 20221026
  Receipt Date: 20221026
  Transmission Date: 20230112
  Serious: Yes (Other)
  Sender: FDA-Public Use
  Company Number: None

PATIENT
  Age: 69 Year
  Sex: Female

DRUGS (44)
  1. TRASTUZUMAB [Suspect]
     Active Substance: TRASTUZUMAB
     Indication: Breast cancer metastatic
     Dosage: 336 MG, EVERY 3 WEEKS
     Route: 065
     Dates: start: 20180518, end: 20190327
  2. TRASTUZUMAB [Suspect]
     Active Substance: TRASTUZUMAB
     Dosage: 350 MG, EVERY 3 WEEKS (MAINTENANCE DOSE)
     Route: 065
     Dates: start: 20151203, end: 20180427
  3. PACLITAXEL [Suspect]
     Active Substance: PACLITAXEL
     Indication: Product used for unknown indication
     Dosage: 120 MG, Q4W (34.75 MG CD, 884 MG, 4.92857142 MG; CD: 229.5 MG)
     Route: 042
     Dates: start: 20160204
  4. PACLITAXEL [Suspect]
     Active Substance: PACLITAXEL
     Dosage: 138 MG, Q4W (CUMULATIVE DOSE: 229.5MG)
     Route: 065
     Dates: start: 20151210
  5. PACLITAXEL [Suspect]
     Active Substance: PACLITAXEL
     Dosage: 102 MG, Q4W (EVERY 4 WEEKS (CUMULATIVE DOSE: 236.78572 MG))
     Route: 065
     Dates: start: 20160204, end: 20160218
  6. PACLITAXEL [Suspect]
     Active Substance: PACLITAXEL
     Dosage: 138 MG, Q4W (CUMULATIVE DOSE: 229.5MG)
     Route: 042
     Dates: start: 20151203, end: 20160203
  7. PACLITAXEL [Suspect]
     Active Substance: PACLITAXEL
     Dosage: 138 MG, Q4W (CUMULATIVE DOSE: 229.5MG)
     Route: 065
     Dates: start: 20151203, end: 20161203
  8. PACLITAXEL [Suspect]
     Active Substance: PACLITAXEL
     Dosage: 68 MG, QW ((DATE OF LAST ADMINISTERED DOSE: 10-MAR-2016; CUMULATIVE DOSE: 229.5 MG)
     Route: 042
     Dates: start: 20160303, end: 20160310
  9. HERCEPTIN [Suspect]
     Active Substance: TRASTUZUMAB
     Indication: Breast cancer metastatic
     Dosage: 300 UNK, TIW
     Route: 065
     Dates: start: 20151203, end: 20180427
  10. HERCEPTIN [Suspect]
     Active Substance: TRASTUZUMAB
     Dosage: 450 MG, 1X
     Route: 065
     Dates: start: 20151105, end: 20151105
  11. HERCEPTIN [Suspect]
     Active Substance: TRASTUZUMAB
     Dosage: 336 MG, TIW (DATE AND TIME OF LAST ADMINISTRATION 27 APR 2019)
     Route: 065
     Dates: start: 20180518, end: 20190427
  12. HERCEPTIN [Suspect]
     Active Substance: TRASTUZUMAB
     Dosage: MAINTENANCE DOSE, DATE OF LAST ADMINISTERED DOSE: 27-APR-2018
     Route: 065
     Dates: start: 20151203, end: 20180427
  13. HERCEPTIN [Suspect]
     Active Substance: TRASTUZUMAB
     Dosage: LOADING DOSE, 16.6 MG, MAINTENANCE DOSE
     Route: 065
     Dates: start: 20151105, end: 20151105
  14. DOCETAXEL [Suspect]
     Active Substance: DOCETAXEL
     Indication: Breast cancer metastatic
     Dosage: 124 MG, EVERY 3 WEEKS
     Route: 065
     Dates: start: 20151106, end: 20151106
  15. PERTUZUMAB [Suspect]
     Active Substance: PERTUZUMAB
     Indication: Breast cancer metastatic
     Dosage: 840 MG, SINGLE (LOADING DOSE) INFUSION, SOLUTION
     Route: 065
     Dates: start: 20151105, end: 20151105
  16. PERTUZUMAB [Suspect]
     Active Substance: PERTUZUMAB
     Indication: Breast cancer metastatic
     Dosage: 420 MG, TIW (MAINTENANCE DOSE) INFUSION, SOLUTION
     Route: 065
     Dates: start: 20151203
  17. PACLITAXEL [Suspect]
     Active Substance: PACLITAXEL
     Indication: Breast cancer metastatic
     Dosage: 120 MG, Q4W MONTHLY, EVERY 4 WEEKS (CUMULATIVE DOSE: 44.67857 MG)
     Route: 065
     Dates: start: 20151210
  18. PACLITAXEL [Suspect]
     Active Substance: PACLITAXEL
     Indication: Breast cancer metastatic
     Dosage: 138 MG, Q4W (MONTHLY, EVERY 4 WEEKS (CUMULATIVE)
     Route: 065
     Dates: start: 20151203, end: 20160203
  19. PACLITAXEL [Suspect]
     Active Substance: PACLITAXEL
     Dosage: 120 MG, Q4W (MONTHLY, EVERY 4 WEEKS (34.75 MG CD,)884 MG, 4.92857142 MG; CUMULATIVE
     Route: 065
     Dates: start: 20160204, end: 20160218
  20. PACLITAXEL [Suspect]
     Active Substance: PACLITAXEL
     Dosage: 102 MG, Q4W ((CUMULATIVED DOSE: 229.5 MG)
     Route: 065
     Dates: start: 20160204, end: 20160218
  21. PACLITAXEL [Suspect]
     Active Substance: PACLITAXEL
     Dosage: 139 MG, Q4W
     Route: 065
     Dates: start: 20151210
  22. PACLITAXEL [Suspect]
     Active Substance: PACLITAXEL
     Dosage: 68 MG, QW ((DATE OF LAST ADMINISTERED DOSE: 10-MAR-2)
     Route: 065
     Dates: start: 20160303, end: 20160310
  23. PACLITAXEL [Suspect]
     Active Substance: PACLITAXEL
     Dosage: 102 MG, QW
     Route: 042
     Dates: start: 20160303, end: 20160310
  24. ASPIRIN [Concomitant]
     Active Substance: ASPIRIN
     Indication: Product used for unknown indication
     Dosage: 75 MG, 1X/DAY
     Route: 065
     Dates: start: 20170523, end: 20170701
  25. ASPIRIN [Concomitant]
     Active Substance: ASPIRIN
     Dosage: 75 MG, QD 75 MILLIGRAM, (75 MG, 1X/DAY)
     Route: 048
     Dates: start: 20170701
  26. RANITIDINE [Concomitant]
     Active Substance: RANITIDINE
     Indication: Prophylaxis
     Dosage: 150 MG, UNK (1 TABLET TWICE A DAY FOR 3 DAYS)
     Route: 065
     Dates: start: 20151203
  27. DEXAMETHASONE [Concomitant]
     Active Substance: DEXAMETHASONE
     Indication: Prophylaxis
     Dosage: 8 MG, UNK
     Route: 065
     Dates: start: 20151105
  28. ROSUVASTATIN [Concomitant]
     Active Substance: ROSUVASTATIN
     Indication: Product used for unknown indication
     Dosage: 5 MG
     Route: 065
     Dates: start: 201806, end: 201911
  29. LORATADINE [Concomitant]
     Active Substance: LORATADINE
     Indication: Product used for unknown indication
     Dosage: UNK
     Route: 065
     Dates: start: 20151119, end: 20151217
  30. TRAMADOL HYDROCHLORIDE [Concomitant]
     Active Substance: TRAMADOL HYDROCHLORIDE
     Indication: Prophylaxis
     Dosage: 50 MG, UNK
     Route: 065
     Dates: start: 20151105
  31. ROSUVASTATIN CALCIUM [Concomitant]
     Active Substance: ROSUVASTATIN CALCIUM
     Indication: Product used for unknown indication
     Dosage: 5 MG
     Route: 048
     Dates: start: 201806, end: 201911
  32. TRIMETHOPRIM [Concomitant]
     Active Substance: TRIMETHOPRIM
     Indication: Urinary tract infection
     Dosage: 200 MG, BID
     Route: 048
     Dates: start: 20151210
  33. LOPERAMIDE [Concomitant]
     Active Substance: LOPERAMIDE
     Indication: Prophylaxis
     Dosage: 2 MG, UNK (4 TABLET TWICE A DAY FOR 3 DAYS)
     Route: 065
     Dates: start: 20151203
  34. LOPERAMIDE [Concomitant]
     Active Substance: LOPERAMIDE
     Dosage: 4 DF, BID FOR 3 DAYS
     Route: 065
     Dates: start: 20151203
  35. CETIRIZINE [Concomitant]
     Active Substance: CETIRIZINE HYDROCHLORIDE
     Indication: Antiviral prophylaxis
     Dosage: 1 TABLET AT NIGHT FOR 3 DAYS
     Route: 065
     Dates: start: 20151203
  36. CHLORHEXIDINE GLUCONATE [Concomitant]
     Active Substance: CHLORHEXIDINE GLUCONATE
     Indication: Prophylaxis
     Dosage: UNK, (4 EVERY 1 DAY (MOUTHWASH), MOUTHWASH
     Route: 065
     Dates: start: 20151105
  37. EZETIMIBE [Concomitant]
     Active Substance: EZETIMIBE
     Indication: Product used for unknown indication
     Dosage: UNKNOWN
     Route: 065
     Dates: start: 2019
  38. METOCLOPRAMIDE [Concomitant]
     Active Substance: METOCLOPRAMIDE
     Indication: Prophylaxis of nausea and vomiting
     Dosage: 10 MG, UNK
     Route: 065
     Dates: start: 20151203
  39. RAMIPRIL [Concomitant]
     Active Substance: RAMIPRIL
     Indication: Product used for unknown indication
     Dosage: 1.25 MG 1.25 MILLIGRAM,1.25 MG, EVERY 1 DAY (START 23-MAY-2017)
     Route: 048
     Dates: start: 20170523
  40. RAMIPRIL [Concomitant]
     Active Substance: RAMIPRIL
     Dosage: 2.5 MG, QD (CUM DOSE TO FIRST REACTION 1347.3959 MG)
     Route: 048
     Dates: start: 20170523
  41. LANSOPRAZOLE [Concomitant]
     Active Substance: LANSOPRAZOLE
     Indication: Product used for unknown indication
     Dosage: 30 MG, 1X/DAY
     Route: 065
     Dates: start: 20170312
  42. CLOPIDOGREL [Concomitant]
     Active Substance: CLOPIDOGREL BISULFATE
     Indication: Product used for unknown indication
     Dosage: UNKNOWN
     Route: 065
     Dates: start: 20170701
  43. ATORVASTATIN [Concomitant]
     Active Substance: ATORVASTATIN
     Indication: Product used for unknown indication
     Dosage: 350 MG, Q3W (MAINTENANCE; CUM DOSE: 33.333332 MG)
     Route: 065
  44. ATORVASTATIN [Concomitant]
     Active Substance: ATORVASTATIN
     Dosage: 40 MG, QD DOSE FORM: 245)(CUMD TO FIRST REA)
     Route: 048
     Dates: start: 20170701

REACTIONS (4)
  - Tendonitis [Not Recovered/Not Resolved]
  - Bacterial test positive [Recovered/Resolved]
  - Palmar erythema [Recovered/Resolved]
  - Fatigue [Not Recovered/Not Resolved]
